FAERS Safety Report 13582666 (Version 2)
Quarter: 2017Q2

REPORT INFORMATION
  Report Type: Spontaneous
  Country: US (occurrence: US)
  Receive Date: 20170525
  Receipt Date: 20170525
  Transmission Date: 20170830
  Serious: Yes (Other)
  Sender: FDA-Public Use
  Company Number: US-PFIZER INC-2971245

PATIENT
  Age: 60 Year
  Sex: Male
  Weight: 91.86 kg

DRUGS (12)
  1. FLUTICASONE PROPIONATE. [Concomitant]
     Active Substance: FLUTICASONE PROPIONATE
     Indication: PRODUCT USED FOR UNKNOWN INDICATION
     Dosage: 1 SPRAY EACH NOSTRIL, FREQ: 1 DAY; INTERVAL: 1
     Route: 045
  2. CYCLOBENZAPRINE HYDROCHLORIDE. [Concomitant]
     Active Substance: CYCLOBENZAPRINE HYDROCHLORIDE
     Indication: PRODUCT USED FOR UNKNOWN INDICATION
     Dosage: 30 MG, FREQ: 3 DAY; INTERVAL: 1
     Route: 065
  3. EPINEPHRINE/LIDOCAINE HYDROCHLORIDE [Suspect]
     Active Substance: EPINEPHRINE\LIDOCAINE HYDROCHLORIDE
     Indication: ANAESTHETIC PREMEDICATION
     Dosage: 10 ML, FREQ: 1 DAY; INTERVAL: 1.
     Route: 065
     Dates: start: 20150622, end: 20150622
  4. SALBUTAMOL [Concomitant]
     Active Substance: ALBUTEROL
     Indication: PRODUCT USED FOR UNKNOWN INDICATION
     Dosage: 2 PUFFS; FREQ: 1 DAY; INTERVAL: 1
     Route: 055
  5. FLUTICASONE FUROATE [Concomitant]
     Active Substance: FLUTICASONE FUROATE
     Indication: PRODUCT USED FOR UNKNOWN INDICATION
     Dosage: 2 SPRAYS PER NOSTRIL, EVERY BEDTIMNE
     Route: 045
  6. ACETYLSALICYLIC ACID [Concomitant]
     Active Substance: ASPIRIN
     Indication: PRODUCT USED FOR UNKNOWN INDICATION
     Dosage: 81 MG, FREQ: 1 DAY; INTERVAL: 1
     Route: 065
  7. ASCORBIC ACID W/RETINOL/SELENIUM/TOCOPHEROL [Concomitant]
     Indication: PRODUCT USED FOR UNKNOWN INDICATION
     Dosage: AS DIRECTED
     Route: 065
  8. TIZANIDINE. [Concomitant]
     Active Substance: TIZANIDINE
     Indication: PRODUCT USED FOR UNKNOWN INDICATION
     Dosage: EVERY 8 HOURS AS NEEDED
     Route: 065
  9. CETIRIZINE HYDROCHLORIDE\PSEUDOEPHEDRINE HYDROCHLORIDE [Concomitant]
     Active Substance: CETIRIZINE HYDROCHLORIDE\PSEUDOEPHEDRINE HYDROCHLORIDE
     Indication: PRODUCT USED FOR UNKNOWN INDICATION
     Dosage: 2 DF, FREQ: 2 DAY; INTERVAL: 1
     Route: 065
  10. TESTOSTERONE. [Suspect]
     Active Substance: TESTOSTERONE
     Indication: BLOOD TESTOSTERONE DECREASED
     Dosage: 10 PELLETS INSERTED
     Route: 058
     Dates: start: 20150622
  11. TESTOSTERONE. [Suspect]
     Active Substance: TESTOSTERONE
     Dosage: 10 PELLETS INSERTED
     Route: 058
     Dates: start: 20150622
  12. GLUCOSAMINE + CHONDROITIN SULFATE [Concomitant]
     Indication: PRODUCT USED FOR UNKNOWN INDICATION
     Dosage: AS DIRECTED
     Route: 065

REACTIONS (12)
  - Injection site paraesthesia [Unknown]
  - Contusion [Unknown]
  - Implant site infection [Not Recovered/Not Resolved]
  - Pain [Unknown]
  - Prescribed overdose [Unknown]
  - Blood blister [Not Recovered/Not Resolved]
  - Drug ineffective [Not Recovered/Not Resolved]
  - Swelling [Unknown]
  - Implant site necrosis [Unknown]
  - Injection site pain [Unknown]
  - Eschar [Not Recovered/Not Resolved]
  - Erythema [Unknown]

NARRATIVE: CASE EVENT DATE: 20150101
